FAERS Safety Report 7972037-7 (Version None)
Quarter: 2011Q4

REPORT INFORMATION
  Report Type: 
  Country: None (occurrence: None)
  Receive Date: 20111212
  Receipt Date: 20111206
  Transmission Date: 20120403
  Serious: Yes (Hospitalization)
  Sender: FDA-Public Use
  Company Number: US-GILEAD-2011-0046957

PATIENT
  Sex: Female

DRUGS (10)
  1. NUCYNTA [Concomitant]
  2. COENZYME [Concomitant]
  3. LOVENOX [Concomitant]
  4. KLONOPIN [Concomitant]
  5. DEXLANSOPRAZOLE [Concomitant]
  6. FLOVENT [Concomitant]
  7. NASONEX [Concomitant]
  8. LETAIRIS [Suspect]
     Indication: PULMONARY HYPERTENSION
     Dosage: 10 MG, UNK
     Route: 048
     Dates: start: 20110817
  9. EPOPROSTENOL SODIUM [Suspect]
  10. CLARITIN                           /00917501/ [Concomitant]

REACTIONS (2)
  - NASAL SEPTAL OPERATION [None]
  - DIARRHOEA [None]
